FAERS Safety Report 19566545 (Version 1)
Quarter: 2021Q3

REPORT INFORMATION
  Report Type: Spontaneous
  Country: US (occurrence: US)
  Receive Date: 20210716
  Receipt Date: 20210716
  Transmission Date: 20211014
  Serious: Yes (Hospitalization, Other)
  Sender: FDA-Public Use
  Company Number: US-GLAXOSMITHKLINE-US2021GSK149119

PATIENT
  Sex: Male

DRUGS (7)
  1. LAMOTRIGINE. [Suspect]
     Active Substance: LAMOTRIGINE
     Indication: EPILEPSY
     Dosage: UNK
  2. LEVETIRACETAM. [Suspect]
     Active Substance: LEVETIRACETAM
     Indication: TREMOR
     Dosage: UNK
  3. PHENYTOINE [Suspect]
     Active Substance: PHENYTOIN
     Indication: TREMOR
     Dosage: UNK
  4. TOPIRAMATE. [Suspect]
     Active Substance: TOPIRAMATE
     Indication: EPILEPSY
     Dosage: UNK
  5. ESCITALOPRAM [Suspect]
     Active Substance: ESCITALOPRAM OXALATE
     Indication: DEPRESSION
     Dosage: UNK
  6. LORAZEPAM. [Suspect]
     Active Substance: LORAZEPAM
     Indication: TREMOR
     Dosage: UNK
  7. MARIJUANA [Suspect]
     Active Substance: CANNABIS SATIVA SUBSP. INDICA TOP
     Indication: DEPRESSION
     Dosage: UNK

REACTIONS (5)
  - Pyrexia [Recovered/Resolved]
  - Serotonin syndrome [Unknown]
  - Muscle rigidity [Unknown]
  - Therapy non-responder [Unknown]
  - Tremor [Unknown]
